FAERS Safety Report 11364254 (Version 2)
Quarter: 2015Q3

REPORT INFORMATION
  Report Type: Spontaneous
  Country: TR (occurrence: TR)
  Receive Date: 20150811
  Receipt Date: 20150817
  Transmission Date: 20151125
  Serious: Yes (Hospitalization)
  Sender: FDA-Public Use
  Company Number: TR-SA-2015SA117355

PATIENT
  Age: 73 Year
  Sex: Male

DRUGS (3)
  1. CLOPIDOGREL BISULFATE. [Suspect]
     Active Substance: CLOPIDOGREL BISULFATE
     Indication: ANTIPLATELET THERAPY
     Route: 065
  2. ACETYLSALICYLIC ACID [Suspect]
     Active Substance: ASPIRIN
     Indication: ANTIPLATELET THERAPY
     Route: 065
  3. UNFRACTIONATED HEPARIN [Concomitant]
     Active Substance: HEPARIN SODIUM
     Dosage: 75 U/KG

REACTIONS (8)
  - Monoparesis [Not Recovered/Not Resolved]
  - Carotid artery occlusion [Recovering/Resolving]
  - Dysarthria [Recovering/Resolving]
  - Drug resistance [Unknown]
  - Nuclear magnetic resonance imaging brain abnormal [Recovering/Resolving]
  - Vascular stent thrombosis [Recovering/Resolving]
  - Cerebral infarction [Recovering/Resolving]
  - Monoplegia [Not Recovered/Not Resolved]
